FAERS Safety Report 10084147 (Version 1)
Quarter: 2014Q2

REPORT INFORMATION
  Report Type: Spontaneous
  Country: US (occurrence: US)
  Receive Date: 20140417
  Receipt Date: 20140417
  Transmission Date: 20141212
  Serious: Yes (Hospitalization)
  Sender: FDA-Public Use
  Company Number: US-SA-2014SA048375

PATIENT
  Age: 79 Year
  Sex: Female

DRUGS (15)
  1. AMBIEN [Suspect]
     Indication: INSOMNIA
     Route: 048
     Dates: end: 20131230
  2. LANTUS [Suspect]
     Indication: TYPE 2 DIABETES MELLITUS
     Route: 058
  3. PLACEBO [Suspect]
     Indication: TYPE 2 DIABETES MELLITUS
     Route: 065
     Dates: start: 20131220, end: 20131223
  4. OXYCODONE [Suspect]
     Indication: PAIN
     Route: 048
     Dates: end: 20131230
  5. GLIPIZIDE [Suspect]
     Indication: TYPE 2 DIABETES MELLITUS
     Route: 048
  6. BIOTIN [Concomitant]
  7. TORASEMIDE [Concomitant]
     Route: 065
     Dates: start: 20131230
  8. ADVAIR DISKUS [Concomitant]
  9. MULTIVITAMINS [Concomitant]
  10. PAXIL [Concomitant]
  11. BENICAR [Concomitant]
  12. CELEBREX [Concomitant]
  13. CALCIUM/MAGNESIUM/ZINC [Concomitant]
  14. FLAXSEED OIL [Concomitant]
  15. VITAMIN D3 [Concomitant]

REACTIONS (1)
  - Toxic encephalopathy [Recovered/Resolved]
